FAERS Safety Report 25726723 (Version 2)
Quarter: 2025Q3

REPORT INFORMATION
  Report Type: Spontaneous
  Country: JP (occurrence: JP)
  Receive Date: 20250826
  Receipt Date: 20250901
  Transmission Date: 20251021
  Serious: Yes (Other)
  Sender: NOVARTIS
  Company Number: JP-002147023-NVSJ2025JP008481

PATIENT
  Age: 39 Year
  Sex: Male

DRUGS (1)
  1. NILOTINIB [Suspect]
     Active Substance: NILOTINIB
     Indication: Chronic myeloid leukaemia
     Route: 065

REACTIONS (2)
  - Myocardial ischaemia [Unknown]
  - Cerebral infarction [Unknown]
